FAERS Safety Report 9383163 (Version 1)
Quarter: 2013Q3

REPORT INFORMATION
  Report Type: Report from Study
  Country: US (occurrence: US)
  Receive Date: 20130704
  Receipt Date: 20130704
  Transmission Date: 20140515
  Serious: Yes (Hospitalization)
  Sender: FDA-Public Use
  Company Number: US-BRISTOL-MYERS SQUIBB COMPANY-19059617

PATIENT
  Age: 65 Year
  Sex: Male

DRUGS (1)
  1. APIXABAN [Suspect]
     Indication: THROMBOSIS PROPHYLAXIS
     Dosage: INTERRUPTED ON 15DEC2012, RESTAT ON 21DEC12, STOPPED ON 15MAR2013
     Route: 048
     Dates: start: 20101112

REACTIONS (3)
  - Sepsis [Recovered/Resolved]
  - Abscess limb [Recovered/Resolved]
  - Haematoma [Recovered/Resolved]
